FAERS Safety Report 9422311 (Version 1)
Quarter: 2013Q3

REPORT INFORMATION
  Report Type: Spontaneous
  Country: DE (occurrence: DE)
  Receive Date: 20130726
  Receipt Date: 20130726
  Transmission Date: 20140515
  Serious: Yes (Hospitalization, Other)
  Sender: FDA-Public Use
  Company Number: DE-BAYER-2013-088707

PATIENT
  Age: 42 Year
  Sex: Male

DRUGS (2)
  1. ASPIRIN [Suspect]
     Indication: CEREBRAL ISCHAEMIA
     Dosage: 500 MG, UNK
  2. CLOPIDOGREL [Suspect]
     Indication: CEREBRAL ISCHAEMIA

REACTIONS (5)
  - Cerebral haemorrhage [None]
  - Hemiparesis [None]
  - Depressed level of consciousness [None]
  - Intraventricular haemorrhage [None]
  - Hydrocephalus [None]
